FAERS Safety Report 9825407 (Version 1)
Quarter: 2014Q1

REPORT INFORMATION
  Report Type: Spontaneous
  Country: US (occurrence: US)
  Receive Date: 20140117
  Receipt Date: 20140117
  Transmission Date: 20141002
  Serious: No
  Sender: FDA-Public Use
  Company Number: US-PFIZER INC-2014012574

PATIENT
  Sex: Female

DRUGS (2)
  1. PRISTIQ [Suspect]
     Indication: DEPRESSION
     Dosage: 100 MG, DAILY (1 IN 1 D)
     Route: 048
  2. LORCASERIN HYDROCHLORIDE [Interacting]
     Indication: WEIGHT DECREASED
     Dosage: 10 MG, 2X/DAY (10 MG, 2 IN 1D)
     Route: 048
     Dates: start: 201310, end: 201312

REACTIONS (3)
  - Euphoric mood [Recovered/Resolved]
  - Dizziness [Recovered/Resolved]
  - Drug interaction [Recovered/Resolved]
